FAERS Safety Report 4355602-8 (Version None)
Quarter: 2004Q2

REPORT INFORMATION
  Report Type: 
  Country: None (occurrence: None)
  Receive Date: 20040510
  Receipt Date: 20040503
  Transmission Date: 20050107
  Serious: Yes (Other)
  Sender: FDA-Public Use
  Company Number: FR-GLAXOSMITHKLINE-B0332102A

PATIENT
  Age: 49 Year
  Sex: Male

DRUGS (1)
  1. ZYBAN [Suspect]
     Indication: EX-SMOKER
     Route: 048
     Dates: start: 20030907, end: 20030922

REACTIONS (2)
  - LOSS OF CONSCIOUSNESS [None]
  - MALAISE [None]
